FAERS Safety Report 10219839 (Version 2)
Quarter: 2014Q3

REPORT INFORMATION
  Report Type: Spontaneous
  Country: FR (occurrence: FR)
  Receive Date: 20140605
  Receipt Date: 20140702
  Transmission Date: 20150326
  Serious: Yes (Other)
  Sender: FDA-Public Use
  Company Number: FR-ALLERGAN-1411966US

PATIENT
  Age: 63 Year
  Sex: Female

DRUGS (4)
  1. ALPHAGAN 0,2% (2MG/ML), COLLYRE EN SOLUTION [Suspect]
     Active Substance: BRIMONIDINE TARTRATE
     Indication: PRODUCT USED FOR UNKNOWN INDICATION
     Dosage: UNK
     Route: 047
     Dates: start: 20130531, end: 201403
  2. LUMIGAN [Suspect]
     Active Substance: BIMATOPROST
     Indication: PRODUCT USED FOR UNKNOWN INDICATION
  3. MONOPROST [Concomitant]
     Dosage: UNK
     Route: 047
     Dates: start: 201405, end: 201406
  4. TRUSOPT [Suspect]
     Active Substance: DORZOLAMIDE HYDROCHLORIDE
     Indication: PRODUCT USED FOR UNKNOWN INDICATION

REACTIONS (3)
  - General physical health deterioration [Recovered/Resolved]
  - Hepatic enzyme increased [Recovered/Resolved]
  - Acne [Recovered/Resolved]
